FAERS Safety Report 17228464 (Version 1)
Quarter: 2020Q1

REPORT INFORMATION
  Report Type: Spontaneous
  Country: GB (occurrence: GB)
  Receive Date: 20200103
  Receipt Date: 20200103
  Transmission Date: 20200409
  Serious: Yes (Hospitalization)
  Sender: FDA-Public Use
  Company Number: GB-TEVA-2019-GB-1161392

PATIENT
  Age: 66 Year
  Sex: Male

DRUGS (14)
  1. NOVORAPID [Concomitant]
     Active Substance: INSULIN ASPART
     Dosage: 100UNITS/ML, IMMEDIATELY BEFORE MEALS OR WHEN NECESSARY AFTER MEALS ACCORDING TO REQUIREMENTS.
     Route: 058
  2. DIHYDROCODEINE [Concomitant]
     Active Substance: DIHYDROCODEINE
     Dosage: 360 MILLIGRAM DAILY;  AT 10AM AND 10PM
  3. PREGABALIN. [Concomitant]
     Active Substance: PREGABALIN
     Dosage: 150 MILLIGRAM
  4. FLUDROCORTISONE [Suspect]
     Active Substance: FLUDROCORTISONE
     Dosage: 150 MICROGRAM
  5. EVACAL D3 CHEWABLE [Concomitant]
     Dosage: 1500MG/400UNIT, UNIT DOSE : 2 DOSAGE FORM
  6. ULTRABASE [Concomitant]
     Dosage: 1 DOSAGE FORM, APPLY 3-4 HOURLY
  7. LANTUS [Concomitant]
     Active Substance: INSULIN GLARGINE
     Dosage: 100UNITS/ML, 3ML PRE-FILLED SOLOSTAR PEN
  8. SALBUTAMOL [Concomitant]
     Active Substance: ALBUTEROL
     Dosage: 200 MICROGRAM, PUFFS
  9. BRALTUS [Concomitant]
     Active Substance: TIOTROPIUM BROMIDE
     Dosage: 10 MICROGRAM, USE ZONDA INHALER
     Route: 055
  10. CLONAZEPAM. [Concomitant]
     Active Substance: CLONAZEPAM
     Dosage: 1000 MICROGRAM DAILY; AT NIGHT
  11. HYDROCORTISONE. [Suspect]
     Active Substance: HYDROCORTISONE
     Dosage: 90 MILLIGRAM DAILY; IN MORNING, LUNCH AND EVENING.
  12. ACETYLSALICYLIC ACID [Suspect]
     Active Substance: ASPIRIN
     Dosage: 75 MILLIGRAM, DISSOLVED IN WATER
  13. GLUCOSE [Concomitant]
     Active Substance: DEXTROSE
     Dosage: AS DIRECTED
  14. OMEPRAZOLE. [Concomitant]
     Active Substance: OMEPRAZOLE
     Dosage: 40 MILLIGRAM

REACTIONS (1)
  - Gastritis [Unknown]
